FAERS Safety Report 13484999 (Version 2)
Quarter: 2017Q2

REPORT INFORMATION
  Report Type: Spontaneous
  Country: US (occurrence: US)
  Receive Date: 20170426
  Receipt Date: 20170601
  Transmission Date: 20170830
  Serious: Yes (Death)
  Sender: FDA-Public Use
  Company Number: US-B.I. PHARMACEUTICALS,INC./RIDGEFIELD-2017-BI-023509

PATIENT
  Age: 86 Year
  Sex: Female

DRUGS (1)
  1. AGGRENOX [Suspect]
     Active Substance: ASPIRIN\DIPYRIDAMOLE
     Indication: PRODUCT USED FOR UNKNOWN INDICATION
     Dosage: ONE CAPSULE TWO TIMES DAILY;  FORM STRENGTH: 25 MG / 200 MG; FORMULATION: CAPSULE? ADMINISTRATION CO
     Route: 048
     Dates: start: 20160421

REACTIONS (1)
  - Death [Fatal]

NARRATIVE: CASE EVENT DATE: 20170101
